FAERS Safety Report 8263008-4 (Version None)
Quarter: 2012Q2

REPORT INFORMATION
  Report Type: 
  Country: None (occurrence: None)
  Receive Date: 20120405
  Receipt Date: 20120328
  Transmission Date: 20120825
  Serious: Yes (Other)
  Sender: FDA-Public Use
  Company Number: FR-JNJFOC-20120401460

PATIENT
  Age: 47 Year
  Sex: Male

DRUGS (2)
  1. BETNEVAL [Concomitant]
     Indication: PSORIASIS
     Route: 003
  2. STELARA [Suspect]
     Indication: PSORIASIS
     Route: 058
     Dates: start: 20120323

REACTIONS (3)
  - PRURITUS [None]
  - FATIGUE [None]
  - ANAL FISTULA INFECTION [None]
